FAERS Safety Report 4742272-X (Version None)
Quarter: 2005Q3

REPORT INFORMATION
  Report Type: 
  Country: None (occurrence: None)
  Receive Date: 20050811
  Receipt Date: 20050331
  Transmission Date: 20060218
  Serious: No
  Sender: FDA-Public Use
  Company Number: US-GLAXOSMITHKLINE-A0552149A

PATIENT
  Sex: Female

DRUGS (1)
  1. PAXIL CR [Suspect]
     Dosage: 25MG PER DAY
     Route: 048
     Dates: start: 20031101, end: 20050324

REACTIONS (7)
  - EMOTIONAL DISORDER [None]
  - FATIGUE [None]
  - ILL-DEFINED DISORDER [None]
  - NAUSEA [None]
  - PAIN IN EXTREMITY [None]
  - PALPITATIONS [None]
  - TREMOR [None]
